FAERS Safety Report 15491051 (Version 1)
Quarter: 2018Q4

REPORT INFORMATION
  Report Type: Report from Study
  Country: US (occurrence: US)
  Receive Date: 20181012
  Receipt Date: 20181012
  Transmission Date: 20190205
  Serious: Yes (Other)
  Sender: FDA-Public Use
  Company Number: US-ROCHE-2196067

PATIENT
  Sex: Female
  Weight: 15.2 kg

DRUGS (3)
  1. NUTROPIN AQ [Suspect]
     Active Substance: SOMATROPIN
     Indication: PRODUCT USED FOR UNKNOWN INDICATION
     Route: 058
  2. CALCITRIOL. [Concomitant]
     Active Substance: CALCITRIOL
     Dosage: DAILY
     Route: 048
  3. ENALAPRIL [Concomitant]
     Active Substance: ENALAPRIL
     Dosage: DAILY
     Route: 048

REACTIONS (5)
  - Renal tubular acidosis [Unknown]
  - Blood alkaline phosphatase increased [Unknown]
  - Hypercalciuria [Unknown]
  - Rickets [Unknown]
  - Vitamin D deficiency [Unknown]
